FAERS Safety Report 15966065 (Version 1)
Quarter: 2019Q1

REPORT INFORMATION
  Report Type: Spontaneous
  Country: CN (occurrence: CN)
  Receive Date: 20190215
  Receipt Date: 20190215
  Transmission Date: 20190418
  Serious: Yes (Other)
  Sender: FDA-Public Use
  Company Number: CN-LUPIN PHARMACEUTICALS INC.-2019-00845

PATIENT
  Age: 80 Year
  Sex: Male

DRUGS (3)
  1. CYTARABINE. [Suspect]
     Active Substance: CYTARABINE
     Indication: CHEMOTHERAPY
     Dosage: 20 GRAM, BID FOR 8 DAYS
     Route: 065
     Dates: start: 20171021
  2. DECITABINE. [Suspect]
     Active Substance: DECITABINE
     Indication: ACUTE MYELOID LEUKAEMIA
     Dosage: 25 MILLIGRAM, QD FOR 3 DAYS
     Route: 065
     Dates: start: 20171021
  3. EPIRUBICIN [Suspect]
     Active Substance: EPIRUBICIN
     Indication: ACUTE MYELOID LEUKAEMIA
     Dosage: 10 MILLIGRAM, QD FOR 5 DAYS
     Route: 065
     Dates: start: 20171021

REACTIONS (6)
  - Cardiac dysfunction [Unknown]
  - Asthma [Unknown]
  - Bone marrow failure [Recovered/Resolved]
  - Pneumonia [Unknown]
  - Productive cough [Unknown]
  - Atrial fibrillation [Unknown]
